FAERS Safety Report 8248798-9 (Version None)
Quarter: 2012Q1

REPORT INFORMATION
  Report Type: 
  Country: None (occurrence: None)
  Receive Date: 20120331
  Receipt Date: 20120327
  Transmission Date: 20120608
  Serious: Yes (Other)
  Sender: FDA-Public Use
  Company Number: VE-ABBOTT-11P-178-0871122-00

PATIENT
  Sex: Female

DRUGS (2)
  1. HUMIRA [Suspect]
  2. HUMIRA [Suspect]
     Indication: RHEUMATOID ARTHRITIS
     Dosage: 40MG/0.8ML EVERY OTHER WEEK
     Dates: start: 20080528, end: 20111017

REACTIONS (2)
  - NASOPHARYNGITIS [None]
  - PHARYNGITIS [None]
